FAERS Safety Report 5609199-2 (Version None)
Quarter: 2008Q1

REPORT INFORMATION
  Report Type: 
  Country: None (occurrence: None)
  Receive Date: 20080131
  Receipt Date: 20080128
  Transmission Date: 20080703
  Serious: Yes (Death)
  Sender: FDA-Public Use
  Company Number: DE-AVENTIS-200712734DE

PATIENT
  Age: 51 Year
  Sex: Male
  Weight: 80 kg

DRUGS (6)
  1. CLEXANE MULTI INJEKTIONSLOESUNG [Suspect]
     Indication: THROMBOSIS PROPHYLAXIS
     Route: 058
     Dates: start: 20071029, end: 20071106
  2. UNKNOWN DRUG [Concomitant]
  3. HEPARIN [Concomitant]
     Indication: THROMBOSIS PROPHYLAXIS
     Dates: start: 20071020, end: 20071026
  4. HEPARIN [Concomitant]
     Dates: start: 20071027, end: 20071028
  5. CLONIDIN [Concomitant]
  6. HALOPERIDOL [Concomitant]

REACTIONS (2)
  - DRUG INEFFECTIVE [None]
  - PULMONARY EMBOLISM [None]
